FAERS Safety Report 8784585 (Version 1)
Quarter: 2012Q4

REPORT INFORMATION
  Report Type: Spontaneous
  Country: US (occurrence: None)
  Receive Date: 20120830
  Receipt Date: 20120830
  Transmission Date: 20130627
  Serious: Yes (Other)
  Sender: FDA-Public Use
  Company Number: ADR-2012-01591

PATIENT
  Sex: Male

DRUGS (2)
  1. BACLOFEN INTRATHECAL [Suspect]
     Indication: SURGICAL FAILURE
  2. BACLOFEN INTRATHECAL [Suspect]
     Indication: PAIN

REACTIONS (3)
  - Device malfunction [None]
  - Burning sensation [None]
  - Feeling abnormal [None]
